FAERS Safety Report 8503554-9 (Version None)
Quarter: 2012Q3

REPORT INFORMATION
  Report Type: 
  Country: None (occurrence: None)
  Receive Date: 20120711
  Receipt Date: 20120702
  Transmission Date: 20120928
  Serious: Yes (Other)
  Sender: FDA-Public Use
  Company Number: US-ASTRAZENECA-2012SE44661

PATIENT
  Age: 54 Year
  Sex: Female
  Weight: 131.5 kg

DRUGS (13)
  1. NEXIUM [Suspect]
     Indication: HERNIA
     Dosage: DAILY
     Route: 048
     Dates: end: 20090101
  2. CALCIUM WITH VITAMIN D [Concomitant]
     Indication: ARTHRITIS
  3. OMEPRAZOLE [Suspect]
     Indication: HERNIA
  4. OMEPRAZOLE [Suspect]
     Dates: start: 20090101
  5. OMEPRAZOLE [Suspect]
     Dates: start: 20090101
  6. PROMETRIUM [Concomitant]
     Indication: HORMONE THERAPY
  7. FUROSEMIDE [Concomitant]
     Indication: FLUID RETENTION
  8. FISH OIL [Concomitant]
     Indication: SUPPLEMENTATION THERAPY
  9. VIVELLE [Concomitant]
     Indication: HORMONE THERAPY
     Dosage: 0.038 THREE TIMES A WEEK
  10. OMEPRAZOLE [Suspect]
     Indication: GASTROOESOPHAGEAL REFLUX DISEASE
  11. VITAMIN B3 [Concomitant]
     Indication: SUPPLEMENTATION THERAPY
  12. NEXIUM [Suspect]
     Indication: GASTROOESOPHAGEAL REFLUX DISEASE
     Dosage: DAILY
     Route: 048
     Dates: end: 20090101
  13. AMLODIPINE [Concomitant]
     Indication: BLOOD PRESSURE

REACTIONS (10)
  - HYPERTENSION [None]
  - DYSPHAGIA [None]
  - GASTROOESOPHAGEAL REFLUX DISEASE [None]
  - DRUG INEFFECTIVE [None]
  - OESOPHAGEAL HAEMORRHAGE [None]
  - VOMITING [None]
  - EROSIVE OESOPHAGITIS [None]
  - INTENTIONAL DRUG MISUSE [None]
  - OESOPHAGEAL STENOSIS [None]
  - ARTHRITIS [None]
